FAERS Safety Report 20655486 (Version 4)
Quarter: 2022Q4

REPORT INFORMATION
  Report Type: Report from Study
  Country: CA (occurrence: CA)
  Receive Date: 20220330
  Receipt Date: 20221027
  Transmission Date: 20230112
  Serious: Yes (Hospitalization, Other)
  Sender: FDA-Public Use
  Company Number: CA-OTSUKA-2021_043611

PATIENT
  Sex: Male

DRUGS (2)
  1. CEDAZURIDINE\DECITABINE [Suspect]
     Active Substance: CEDAZURIDINE\DECITABINE
     Indication: Myelodysplastic syndrome
     Dosage: (35 MG DECITABINE AND 100 MG CEDAZURIDINE), QD (1-3 DAYS) EVERY 28-DAY CYCLE
     Route: 065
     Dates: start: 20211210
  2. CEDAZURIDINE\DECITABINE [Suspect]
     Active Substance: CEDAZURIDINE\DECITABINE
     Dosage: (35 MG DECITABINE AND 100 MG CEDAZURIDINE), QD (1-4 DAYS) EVERY 28-DAY CYCLE
     Route: 065

REACTIONS (8)
  - Uveitis [Unknown]
  - COVID-19 [Unknown]
  - Ocular hyperaemia [Unknown]
  - Upper limb fracture [Unknown]
  - Sleep disorder [Unknown]
  - Fatigue [Unknown]
  - Product use issue [Unknown]
  - Therapy cessation [Unknown]
